FAERS Safety Report 6213645-3 (Version None)
Quarter: 2009Q2

REPORT INFORMATION
  Report Type: 
  Country: None (occurrence: None)
  Receive Date: 20090601
  Receipt Date: 20090528
  Transmission Date: 20091009
  Serious: Yes (Death)
  Sender: FDA-Public Use
  Company Number: 2009SP011471

PATIENT
  Sex: Male

DRUGS (2)
  1. TEMODAL [Suspect]
     Indication: BRAIN NEOPLASM
     Dates: end: 20080531
  2. TEMODAL [Suspect]
     Indication: GLIOBLASTOMA
     Dates: end: 20080531

REACTIONS (1)
  - DEATH [None]
